FAERS Safety Report 5363144-6 (Version None)
Quarter: 2007Q2

REPORT INFORMATION
  Report Type: 
  Country: None (occurrence: None)
  Receive Date: 20070618
  Receipt Date: 20070618
  Transmission Date: 20071010
  Serious: Yes (Other)
  Sender: FDA-Public Use
  Company Number: None

PATIENT
  Sex: Female
  Weight: 46.7205 kg

DRUGS (3)
  1. BAXTER INFUSOR LV [Suspect]
     Indication: NEOPLASM MALIGNANT
     Dosage: 5 ML/HR EVERY 2 WEEKS IV DRIP 40 HOUR INFUSION
     Route: 041
     Dates: start: 20070522, end: 20070524
  2. BAXTER INFUSOR LV [Suspect]
     Indication: NEOPLASM MALIGNANT
     Dosage: 5 ML/HR EVERY 2 WEEKS IV DRIP 40 HOUR INFUSION
     Route: 041
     Dates: start: 20070606, end: 20070608
  3. BAXTER INFUSOR LV [Suspect]

REACTIONS (5)
  - DRUG TOXICITY [None]
  - HYPOAESTHESIA [None]
  - INCORRECT DRUG ADMINISTRATION DURATION [None]
  - MEDICATION ERROR [None]
  - STOMATITIS [None]
